FAERS Safety Report 8559896-4 (Version None)
Quarter: 2012Q3

REPORT INFORMATION
  Report Type: 
  Country: None (occurrence: None)
  Receive Date: 20120802
  Receipt Date: 20120725
  Transmission Date: 20120928
  Serious: Yes (Death)
  Sender: FDA-Public Use
  Company Number: FR-AMGEN-FRASP2012040263

PATIENT
  Age: 45 Year
  Sex: Female
  Weight: 60 kg

DRUGS (2)
  1. ARANESP [Suspect]
     Indication: PRODUCT USED FOR UNKNOWN INDICATION
     Dosage: 500 MUG, 2 INJECTIONS
     Route: 042
     Dates: start: 20120401, end: 20120701
  2. CHEMOTHERAPEUTICS [Concomitant]
     Indication: NEOPLASM MALIGNANT

REACTIONS (2)
  - INJECTION SITE PAIN [None]
  - DEATH [None]
